FAERS Safety Report 13801454 (Version 1)
Quarter: 2017Q3

REPORT INFORMATION
  Report Type: Spontaneous
  Country: US (occurrence: US)
  Receive Date: 20170727
  Receipt Date: 20170727
  Transmission Date: 20171127
  Serious: No
  Sender: FDA-Public Use
  Company Number: US-SEBELA IRELAND LIMITED-2016SEB01549

PATIENT
  Age: 58 Year
  Sex: Female

DRUGS (2)
  1. ^MANY IMMUNOSUPRESSANTS^ [Concomitant]
  2. BRISDELLE [Suspect]
     Active Substance: PAROXETINE MESYLATE
     Dosage: UNK
     Dates: start: 2015, end: 2015

REACTIONS (3)
  - Decreased interest [Recovered/Resolved]
  - Mood swings [Recovered/Resolved]
  - Night sweats [Recovered/Resolved]

NARRATIVE: CASE EVENT DATE: 2015
